FAERS Safety Report 4296080-7 (Version None)
Quarter: 2004Q1

REPORT INFORMATION
  Report Type: 
  Country: None (occurrence: None)
  Receive Date: 20040212
  Receipt Date: 20040202
  Transmission Date: 20041129
  Serious: Yes (Hospitalization)
  Sender: FDA-Public Use
  Company Number: DEWYE517719JAN04

PATIENT
  Age: 66 Year
  Sex: Male

DRUGS (3)
  1. RAPAMUNE [Suspect]
     Indication: PROPHYLAXIS AGAINST TRANSPLANT REJECTION
     Dosage: 2 MG, ORAL
     Route: 048
     Dates: start: 20031030, end: 20040114
  2. CELLCEPT [Concomitant]
  3. URBASON (METHYLPREDNISOLONE) [Concomitant]

REACTIONS (4)
  - ALVEOLITIS FIBROSING [None]
  - HAEMOGLOBIN DECREASED [None]
  - PNEUMONITIS [None]
  - WHITE BLOOD CELL COUNT DECREASED [None]
